FAERS Safety Report 6847634-2 (Version None)
Quarter: 2010Q3

REPORT INFORMATION
  Report Type: 
  Country: None (occurrence: None)
  Receive Date: 20100716
  Receipt Date: 20100705
  Transmission Date: 20110219
  Serious: Yes (Hospitalization, Other)
  Sender: FDA-Public Use
  Company Number: PHHY2010BR44616

PATIENT
  Sex: Female

DRUGS (1)
  1. EXFORGE [Suspect]
     Dosage: 160/5 MG

REACTIONS (4)
  - HEADACHE [None]
  - HERNIA HIATUS REPAIR [None]
  - NECK PAIN [None]
  - POST PROCEDURAL COMPLICATION [None]
